FAERS Safety Report 12615539 (Version 1)
Quarter: 2016Q3

REPORT INFORMATION
  Report Type: Spontaneous
  Country: US (occurrence: US)
  Receive Date: 20160802
  Receipt Date: 20160802
  Transmission Date: 20161109
  Serious: Yes (Hospitalization)
  Sender: FDA-Public Use
  Company Number: US-ETHYPHARM USA CORP-EY-BPN-US-2016-008

PATIENT
  Age: 2 Year
  Sex: Female

DRUGS (1)
  1. BUPRENORPHINE AND NALOXONE [Suspect]
     Active Substance: BUPRENORPHINE\NALOXONE
     Indication: PRODUCT USED FOR UNKNOWN INDICATION
     Route: 048
     Dates: start: 20160531, end: 20160531

REACTIONS (2)
  - Accidental exposure to product by child [Unknown]
  - Somnolence [Unknown]
